FAERS Safety Report 18837226 (Version 2)
Quarter: 2021Q1

REPORT INFORMATION
  Report Type: Spontaneous
  Country: US (occurrence: US)
  Receive Date: 20210203
  Receipt Date: 20210322
  Transmission Date: 20210419
  Serious: No
  Sender: FDA-Public Use
  Company Number: US-ASTRAZENECA-2021A003818

PATIENT
  Age: 1024 Month
  Sex: Female
  Weight: 60.8 kg

DRUGS (10)
  1. BUDESONIDE FORMOTEROL [Suspect]
     Active Substance: BUDESONIDE
     Indication: ASTHMA
     Dosage: 160/4.5 MCG ONE PUFFS TWICE A DAY
     Route: 055
     Dates: start: 20210102, end: 20210102
  2. DILTIAZEM. [Concomitant]
     Active Substance: DILTIAZEM
     Dosage: AT NIGHT
  3. SYMBICORT [Suspect]
     Active Substance: BUDESONIDE\FORMOTEROL FUMARATE DIHYDRATE
     Indication: ASTHMA
     Dosage: 160?4.5 MCG INHALER TWO PUFFS TWICE A DAY
     Route: 055
     Dates: start: 20210104
  4. BUDESONIDE FORMOTEROL [Suspect]
     Active Substance: BUDESONIDE
     Indication: ASTHMA
     Dosage: DOSE UNKNOWN UNKNOWN
     Route: 055
  5. CHLORTHALIDONE. [Concomitant]
     Active Substance: CHLORTHALIDONE
     Indication: DIURETIC THERAPY
     Dosage: DAILY
  6. BABY ASPIRIN [Concomitant]
     Active Substance: ASPIRIN
  7. QVAR [Concomitant]
     Active Substance: BECLOMETHASONE DIPROPIONATE
  8. VENTOLIN [Concomitant]
     Active Substance: ALBUTEROL SULFATE
     Dosage: AS REQUIRED
  9. ENALAPRIL [Concomitant]
     Active Substance: ENALAPRIL
     Indication: BLOOD PRESSURE ABNORMAL
     Dosage: TWO TIMES A DAY
  10. BUDESONIDE FORMOTEROL [Suspect]
     Active Substance: BUDESONIDE
     Indication: ASTHMA
     Dosage: 160/4.5 MCG TWO PUFFS TWICE A DAY
     Route: 055
     Dates: start: 20201209, end: 20210101

REACTIONS (7)
  - Device malfunction [Unknown]
  - Visual impairment [Unknown]
  - Intentional device misuse [Not Recovered/Not Resolved]
  - Wrong technique in device usage process [Not Recovered/Not Resolved]
  - Product dose omission issue [Recovered/Resolved]
  - Device defective [Unknown]
  - Incorrect dose administered [Unknown]

NARRATIVE: CASE EVENT DATE: 202012
